FAERS Safety Report 4336086-2 (Version None)
Quarter: 2004Q2

REPORT INFORMATION
  Report Type: 
  Country: None (occurrence: None)
  Receive Date: 20040406
  Receipt Date: 20040326
  Transmission Date: 20050107
  Serious: Yes (Other)
  Sender: FDA-Public Use
  Company Number: 200410936GDS

PATIENT
  Age: 91 Year
  Sex: Male
  Weight: 72 kg

DRUGS (10)
  1. ASPIRIN [Suspect]
     Indication: ATRIAL FIBRILLATION
     Dosage: 300 MG, TOTAL DAILY, ORAL
     Route: 048
     Dates: start: 20030821, end: 20030905
  2. DIGOXIN [Suspect]
     Indication: ATRIAL FIBRILLATION
     Dosage: ORAL
     Route: 048
     Dates: start: 20030822, end: 20030908
  3. NADROPARIN [Suspect]
     Indication: THROMBOSIS PROPHYLAXIS
     Dosage: QOD, ORAL
     Route: 048
     Dates: start: 20030812, end: 20030903
  4. HCTZ/AMILORIDE [Suspect]
     Indication: CARDIAC FAILURE
     Dosage: QOD, ORAL
     Route: 048
     Dates: start: 20030812, end: 20030909
  5. ACETAMINOPHEN [Suspect]
     Indication: PAIN
     Dosage: 1 G, QID, ORAL
     Route: 048
     Dates: start: 20030812, end: 20030916
  6. MULTI-VITAMIN [Concomitant]
  7. FOLIC ACID [Concomitant]
  8. CITALOPRAM [Concomitant]
  9. CLOMETHIAZOLE [Concomitant]
  10. NITROGLYCERIN [Concomitant]

REACTIONS (4)
  - DEPRESSION [None]
  - MYOCARDIAL ISCHAEMIA [None]
  - SLEEP DISORDER [None]
  - THROMBOCYTOPENIA [None]
